FAERS Safety Report 7968077-4 (Version None)
Quarter: 2011Q4

REPORT INFORMATION
  Report Type: 
  Country: None (occurrence: None)
  Receive Date: 20111209
  Receipt Date: 20111206
  Transmission Date: 20120403
  Serious: No
  Sender: FDA-Public Use
  Company Number: US-PFIZER INC-2011297690

PATIENT
  Sex: Female

DRUGS (26)
  1. NAPROXEN SODIUM [Suspect]
     Dosage: UNK
  2. GLIPIZIDE [Concomitant]
     Dosage: 10 MG, 2X/DAY
     Route: 048
  3. MOMETASONE [Concomitant]
     Dosage: 220 UG, 2X/DAY
     Route: 048
  4. POTASSIUM CHLORIDE [Concomitant]
     Dosage: 10 MEQ, 2X/DAY
     Route: 048
  5. FERROUS SULFATE [Concomitant]
     Dosage: 325 MG, 2X/DAY
     Route: 048
  6. ALBUTEROL [Concomitant]
     Dosage: 2 PUFFS Q4-6 HRS PRN
     Route: 048
  7. CLONIDINE [Concomitant]
     Dosage: 0.1 MG, 3X/DAY
     Route: 048
  8. IBUPROFEN [Suspect]
     Dosage: UNK
     Route: 048
  9. CYCLOBENZAPRINE [Concomitant]
     Dosage: 10 MG, 3X/DAY PRN
     Route: 048
  10. FLONASE [Concomitant]
     Dosage: 1 SPRAY IN EACH NOSTRIL
  11. DILTIAZEM [Concomitant]
     Dosage: 120 MG, DAILY
     Route: 048
  12. ACETYLSALICYLIC ACID [Concomitant]
     Dosage: 81 MG, DAILY
  13. FUROSEMIDE [Concomitant]
     Dosage: 20 MG, 3X/DAY
  14. DOCUSATE SODIUM [Concomitant]
     Dosage: 100 IU, AS NEEDED PRN
     Route: 048
  15. PENICILLIN G PROCAINE [Suspect]
     Dosage: UNK
  16. FAMOTIDINE [Concomitant]
     Dosage: 20 MG, 2X/DAY
     Route: 048
  17. PRAZOSIN [Concomitant]
     Dosage: 2 MG, 3X/DAY
     Route: 048
  18. ANASTROZOLE [Concomitant]
     Dosage: 1 MG, DAILY
     Route: 048
  19. SPIRIVA [Concomitant]
  20. NPH INSULIN [Concomitant]
     Dosage: 14 IU, QHS
     Route: 058
  21. ATROVENT [Concomitant]
     Dosage: 2 SPRAYS IN EACH NOSTRIL
  22. OMEPRAZOLE [Concomitant]
     Dosage: 20 MG, DAILY
     Route: 048
  23. MELOXICAM [Concomitant]
     Dosage: 7.5 MG, DAILY
     Route: 048
  24. INDOMETHACIN [Suspect]
     Dosage: UNK
  25. SPIRONOLACTONE [Concomitant]
     Dosage: 25 MG, DAILY
     Route: 048
  26. HYDRALAZINE [Concomitant]
     Dosage: 25 MG, 3X/DAY
     Route: 048

REACTIONS (1)
  - DRUG HYPERSENSITIVITY [None]
